FAERS Safety Report 16312333 (Version 1)
Quarter: 2019Q2

REPORT INFORMATION
  Report Type: Spontaneous
  Country: US (occurrence: US)
  Receive Date: 20190515
  Receipt Date: 20190515
  Transmission Date: 20190711
  Serious: No
  Sender: FDA-Public Use
  Company Number: US-BIOGEN-2019BI00735895

PATIENT
  Age: 34 Year
  Sex: Female

DRUGS (1)
  1. TECFIDERA [Suspect]
     Active Substance: DIMETHYL FUMARATE
     Indication: MULTIPLE SCLEROSIS
     Route: 065
     Dates: start: 20190504

REACTIONS (5)
  - Muscular weakness [Unknown]
  - Upper respiratory tract congestion [Unknown]
  - Rhinorrhoea [Unknown]
  - Epistaxis [Unknown]
  - Sneezing [Unknown]

NARRATIVE: CASE EVENT DATE: 20190504
